FAERS Safety Report 5520011-2 (Version None)
Quarter: 2007Q4

REPORT INFORMATION
  Report Type: 
  Country: None (occurrence: None)
  Receive Date: 20071116
  Receipt Date: 20071114
  Transmission Date: 20080405
  Serious: Yes (Death)
  Sender: FDA-Public Use
  Company Number: US-ASTRAZENECA-2007UW26366

PATIENT
  Age: 11 Year
  Sex: Male

DRUGS (3)
  1. SEROQUEL [Suspect]
     Indication: AGITATION
     Route: 048
  2. DEPAKOTE [Concomitant]
     Route: 048
  3. CLONIDINE [Concomitant]

REACTIONS (1)
  - DEATH [None]
